FAERS Safety Report 23481583 (Version 1)
Quarter: 2024Q1

REPORT INFORMATION
  Report Type: Spontaneous
  Country: US (occurrence: None)
  Receive Date: 20240202
  Receipt Date: 20240202
  Transmission Date: 20240410
  Serious: Yes (Hospitalization)
  Sender: FDA-Public Use
  Company Number: None

PATIENT
  Sex: Male

DRUGS (4)
  1. TOLVAPTAN [Suspect]
     Active Substance: TOLVAPTAN
     Indication: Headache
     Dosage: 7.5MG TWICE PER WEEK BY MOUTH
     Route: 048
     Dates: start: 202304
  2. TOLVAPTAN [Suspect]
     Active Substance: TOLVAPTAN
     Indication: Arthralgia
  3. TOLVAPTAN [Suspect]
     Active Substance: TOLVAPTAN
     Indication: Blood osmolarity decreased
  4. TOLVAPTAN [Suspect]
     Active Substance: TOLVAPTAN
     Indication: Hyponatraemia

REACTIONS (2)
  - Urinary tract infection [None]
  - Diverticulitis [None]
